FAERS Safety Report 17484517 (Version 1)
Quarter: 2020Q1

REPORT INFORMATION
  Report Type: Report from Study
  Country: CN (occurrence: CN)
  Receive Date: 20200302
  Receipt Date: 20200302
  Transmission Date: 20200409
  Serious: Yes (Other)
  Sender: FDA-Public Use
  Company Number: CN-ROCHE-2556727

PATIENT

DRUGS (4)
  1. TOBRADEX [Concomitant]
     Active Substance: DEXAMETHASONE\TOBRAMYCIN
     Indication: IMMUNOSUPPRESSANT DRUG THERAPY
     Dosage: AND THEN TAPERED TO TWICE DAILY FOR 5 MONTHS, FOLLOWED BY ONCE DAILY FOR ANOTHER 6 MONTHS
     Route: 061
  2. BEVACIZUMAB. [Suspect]
     Active Substance: BEVACIZUMAB
     Indication: CHEMICAL BURN
     Route: 057
  3. TACROLIMUS. [Concomitant]
     Active Substance: TACROLIMUS
     Indication: IMMUNOSUPPRESSANT DRUG THERAPY
     Route: 047
  4. PROPARACAINE [PROXYMETACAINE] [Concomitant]
     Indication: ANAESTHESIA
     Route: 047

REACTIONS (2)
  - Conjunctival haemorrhage [Recovered/Resolved]
  - Corneal epithelium defect [Recovered/Resolved]
